FAERS Safety Report 7013238-4 (Version None)
Quarter: 2010Q3

REPORT INFORMATION
  Report Type: 
  Country: None (occurrence: None)
  Receive Date: 20100924
  Receipt Date: 20100915
  Transmission Date: 20110219
  Serious: Yes (Hospitalization)
  Sender: FDA-Public Use
  Company Number: JP-MERCK-1009USA03635

PATIENT
  Age: 81 Year
  Sex: Female

DRUGS (4)
  1. FOSAMAX [Suspect]
     Route: 048
  2. TAKEPRON [Concomitant]
     Dosage: DAILY DOSAGE UNKNOWN
     Route: 048
  3. URSO 250 [Concomitant]
     Dosage: DAILY DOSE UNKNOWN
     Route: 048
  4. ALDACTONE [Concomitant]
     Dosage: DAILY DOSE UNKNOWN
     Route: 048

REACTIONS (1)
  - PLATELET COUNT DECREASED [None]
